FAERS Safety Report 7937659-8 (Version None)
Quarter: 2011Q4

REPORT INFORMATION
  Report Type: 
  Country: None (occurrence: None)
  Receive Date: 20111123
  Receipt Date: 20111116
  Transmission Date: 20120403
  Serious: Yes (Other)
  Sender: FDA-Public Use
  Company Number: PHHY2011CA101532

PATIENT
  Sex: Female

DRUGS (15)
  1. ZOLPIDEM [Concomitant]
     Dosage: UNK UKN, UNK
  2. METFORMIN [Concomitant]
     Dosage: UNK UKN, UNK
  3. METOCLOPRAMIDE [Concomitant]
     Dosage: UNK UKN, UNK
  4. DIOVAN [Concomitant]
     Dosage: UNK UKN, UNK
  5. INSULIN [Concomitant]
     Dosage: UNK UKN, UNK
  6. AREDIA [Suspect]
     Dosage: UNK UKN, UNK
  7. LOMOTIL [Concomitant]
     Dosage: UNK UKN, UNK
  8. REVLIMID [Suspect]
     Dosage: 25 MG, QD
     Route: 048
  9. ACYCLOVIR [Concomitant]
     Dosage: UNK UKN, UNK
  10. XIFAXAN [Concomitant]
     Dosage: UNK UKN, UNK
  11. ZOFRAN [Concomitant]
     Dosage: UNK UKN, UNK
  12. ATARAX [Concomitant]
     Dosage: UNK UKN, UNK
  13. VITAMIN D [Concomitant]
     Dosage: UNK UKN, UNK
  14. CITALOPRAM HYDROBROMIDE [Concomitant]
     Dosage: UNK UKN, UNK
  15. MORPHINE [Concomitant]
     Dosage: UNK UKN, UNK

REACTIONS (1)
  - OSTEOMYELITIS [None]
